FAERS Safety Report 8794796 (Version 2)
Quarter: 2013Q4

REPORT INFORMATION
  Report Type: Report from Study
  Country: JP (occurrence: JP)
  Receive Date: 20120917
  Receipt Date: 20131101
  Transmission Date: 20140711
  Serious: Yes (Other)
  Sender: FDA-Public Use
  Company Number: JP-009507513-1209JPN005027

PATIENT
  Age: 61 Year
  Sex: Male
  Weight: 70 kg

DRUGS (18)
  1. REBETOL [Suspect]
     Indication: HEPATITIS C
     Dosage: 400 MG, QD
     Route: 048
     Dates: start: 20101101, end: 20101223
  2. REBETOL [Suspect]
     Dosage: 200 MG, QD
     Route: 048
     Dates: start: 20110204, end: 20110217
  3. REBETOL [Suspect]
     Dosage: 400 MG, QD
     Route: 048
     Dates: start: 20110218, end: 20110816
  4. REBETOL [Suspect]
     Dosage: 200 MG, QD
     Route: 048
     Dates: start: 20110817, end: 20110913
  5. PEGINTRON [Suspect]
     Indication: HEPATITIS C
     Dosage: 100 MICROGRAM, QW
     Route: 058
     Dates: start: 20110706, end: 20111018
  6. FERON [Suspect]
     Indication: HEPATITIS C
     Dosage: 6 MILLION IU, QD
     Route: 041
     Dates: start: 20101101, end: 20101126
  7. FERON [Suspect]
     Dosage: 6 MILLION IU, TIW
     Route: 042
     Dates: start: 20101130, end: 20110405
  8. FERON [Suspect]
     Dosage: 6 MILLION IU, 1-2 TIMES PER WEEK
     Route: 042
     Dates: start: 20110406, end: 20110705
  9. AMOBAN [Concomitant]
     Indication: INSOMNIA
     Dosage: 10 MG, QD
     Route: 048
     Dates: start: 20101007
  10. ROHYPNOL [Concomitant]
     Indication: INSOMNIA
     Dosage: 2 MG, QD
     Route: 048
     Dates: start: 20100929
  11. HIRNAMIN (LEVOMEPROMAZINE MALEATE) [Concomitant]
     Indication: INSOMNIA
     Dosage: 5 MG, QD
     Route: 048
     Dates: start: 20101012
  12. OMEPRAL [Concomitant]
     Indication: GASTROOESOPHAGEAL REFLUX DISEASE
     Dosage: 10 MG, QD
     Route: 048
     Dates: start: 20101019
  13. VOLTAREN [Concomitant]
     Indication: SPINAL COLUMN STENOSIS
     Dosage: 25 MG, QD
     Route: 054
     Dates: start: 20101018, end: 20110113
  14. LOXONIN [Concomitant]
     Indication: SPINAL COLUMN STENOSIS
     Dosage: 120 MG, QD
     Route: 048
     Dates: start: 20101025
  15. NORVASC [Concomitant]
     Indication: HYPERTENSION
     Dosage: 10 MG, QD
     Route: 048
     Dates: start: 20101001
  16. NEORAL [Concomitant]
     Indication: NEPHROTIC SYNDROME
     Dosage: 200 MG, QD
     Route: 048
     Dates: start: 20101006
  17. MOBIC [Concomitant]
     Indication: SPINAL COLUMN STENOSIS
     Dosage: 10 MG, QD
     Route: 048
     Dates: start: 20110114
  18. ALOSITOL [Concomitant]
     Indication: HYPERURICAEMIA
     Dosage: 200 MG, QD
     Route: 048
     Dates: start: 20101206

REACTIONS (2)
  - Anaemia [Recovered/Resolved]
  - Anaemia [Recovered/Resolved]
